FAERS Safety Report 5174378-8 (Version None)
Quarter: 2006Q4

REPORT INFORMATION
  Report Type: 
  Country: None (occurrence: None)
  Receive Date: 20061214
  Receipt Date: 20030611
  Transmission Date: 20070319
  Serious: Yes (Death, Other)
  Sender: FDA-Public Use
  Company Number: US-ELI_LILLY_AND_COMPANY-USA030639248

PATIENT
  Age: 88 Year
  Sex: Female
  Weight: 50.455 kg

DRUGS (10)
  1. FORTEO [Suspect]
     Indication: SPINAL FRACTURE
     Dosage: 20 UG, OTHER
     Route: 058
     Dates: start: 20030401
  2. EFFEXOR [Concomitant]
     Indication: DEPRESSION
     Dosage: 37.5 MG, DAILY (1/D)
  3. ATIVAN [Concomitant]
     Indication: SLEEP DISORDER
     Dosage: 0.25 MG, EACH EVENING
  4. RISPERDAL [Concomitant]
     Indication: ANXIETY
     Dosage: 0.5 MG, EACH EVENING
  5. TRAZODONE HCL [Concomitant]
     Indication: INITIAL INSOMNIA
     Dosage: 50 MG, EACH EVENING
  6. ENSURE [Concomitant]
     Dosage: UNK, UNKNOWN
  7. CALCIUM [Concomitant]
     Indication: OSTEOPOROSIS
     Dosage: UNK, 2/D
  8. PREMARIN [Concomitant]
     Dosage: UNK, UNKNOWN
  9. CITRUCEL [Concomitant]
     Indication: PROPHYLAXIS
     Dosage: UNK, UNKNOWN
  10. CENTRUM [Concomitant]
     Dosage: UNK, UNKNOWN

REACTIONS (19)
  - ANGINA PECTORIS [None]
  - ARTERIOSCLEROSIS [None]
  - ASTHENIA [None]
  - BACK PAIN [None]
  - BLOOD PRESSURE INCREASED [None]
  - CARDIO-RESPIRATORY ARREST [None]
  - CATHETERISATION CARDIAC [None]
  - CONTUSION [None]
  - COUGH [None]
  - DECREASED APPETITE [None]
  - DIZZINESS [None]
  - DYSGEUSIA [None]
  - HEADACHE [None]
  - HEART RATE INCREASED [None]
  - HIP FRACTURE [None]
  - HYPOTENSION [None]
  - INJECTION SITE BRUISING [None]
  - NAUSEA [None]
  - PLATELET COUNT DECREASED [None]
